FAERS Safety Report 26074487 (Version 1)
Quarter: 2025Q4

REPORT INFORMATION
  Report Type: Spontaneous
  Country: US (occurrence: None)
  Receive Date: 20251120
  Receipt Date: 20251120
  Transmission Date: 20260118
  Serious: Yes (Death)
  Sender: FDA-CTU
  Company Number: None

PATIENT
  Sex: Female

DRUGS (1)
  1. BOTOX [Suspect]
     Active Substance: ONABOTULINUMTOXINA
     Indication: Migraine
     Dosage: OTHER STRENGTH : 200 UNIT;?OTHER QUANTITY : 200 UNITS;?FREQUENCY : AS DIRECTED;?
     Route: 058
     Dates: start: 20250205

REACTIONS (1)
  - Cerebral haemorrhage [None]
